FAERS Safety Report 7946033-X (Version None)
Quarter: 2011Q4

REPORT INFORMATION
  Report Type: 
  Country: None (occurrence: None)
  Receive Date: 20111122
  Receipt Date: 20111111
  Transmission Date: 20120403
  Serious: Yes (Other)
  Sender: FDA-Public Use
  Company Number: 2011SP042754

PATIENT
  Age: 58 Year
  Sex: Male
  Weight: 93.8946 kg

DRUGS (4)
  1. PEG-INTRON [Suspect]
     Indication: PRODUCT USED FOR UNKNOWN INDICATION
  2. RIBAVIRIN [Suspect]
     Indication: HEPATITIS C
     Dosage: 1000 MG
     Dates: start: 20110715
  3. PEGASYS [Suspect]
     Indication: HEPATITIS
     Dosage: 1.5 MCG/KG ; 90 MCG
     Dates: start: 20010101
  4. VICTRELIS [Suspect]
     Indication: HEPATITIS
     Dosage: 800 MG;TID;PO
     Route: 048
     Dates: start: 20110811

REACTIONS (14)
  - RED CELL DISTRIBUTION WIDTH INCREASED [None]
  - PLATELET COUNT DECREASED [None]
  - ARTHRITIS [None]
  - HAEMATOCRIT DECREASED [None]
  - EOSINOPHIL COUNT DECREASED [None]
  - COAGULOPATHY [None]
  - NAUSEA [None]
  - WHITE BLOOD CELL COUNT DECREASED [None]
  - RED BLOOD CELL COUNT DECREASED [None]
  - MEAN CELL VOLUME INCREASED [None]
  - VOMITING [None]
  - CONDITION AGGRAVATED [None]
  - HAEMOGLOBIN DECREASED [None]
  - MONOCYTE PERCENTAGE INCREASED [None]
